FAERS Safety Report 9689322 (Version 1)
Quarter: 2013Q4

REPORT INFORMATION
  Report Type: Report from Study
  Country: US (occurrence: US)
  Receive Date: 20131114
  Receipt Date: 20131114
  Transmission Date: 20140711
  Serious: Yes (Hospitalization, Other)
  Sender: FDA-Public Use
  Company Number: US-ABBVIE-13P-163-1166657-00

PATIENT
  Age: 58 Year
  Sex: Female
  Weight: 52.21 kg

DRUGS (6)
  1. HUMIRA [Suspect]
     Indication: PSORIATIC ARTHROPATHY
     Route: 058
     Dates: start: 201210, end: 201303
  2. AMLODIPINE/BENZAPRIL [Suspect]
     Indication: HYPERTENSION
     Dates: end: 201307
  3. PREDNISONE [Concomitant]
     Indication: PSORIATIC ARTHROPATHY
  4. ARAVA [Concomitant]
     Indication: PSORIATIC ARTHROPATHY
  5. MELOXICAM [Concomitant]
     Indication: PSORIATIC ARTHROPATHY
  6. DIOVAN [Concomitant]
     Indication: HYPERTENSION

REACTIONS (1)
  - Pharyngeal oedema [Recovered/Resolved]
